FAERS Safety Report 8803192 (Version 2)
Quarter: 2012Q4

REPORT INFORMATION
  Report Type: 
  Country: EC (occurrence: EC)
  Receive Date: 20120924
  Receipt Date: 20121004
  Transmission Date: 20130627
  Serious: Yes (Other)
  Sender: FDA-Public Use
  Company Number: PHHY2012EC082357

PATIENT
  Age: 52 Year
  Sex: Female

DRUGS (2)
  1. EXFORGE HCT [Suspect]
     Indication: HYPERTENSION
     Dosage: 1 DF, daily
     Route: 048
     Dates: start: 201109
  2. EXFORGE HCT [Suspect]
     Dosage: 1 DF, BID (in the morning and other in the night)
     Route: 048

REACTIONS (3)
  - Retinal detachment [Recovering/Resolving]
  - Incorrect dose administered [Unknown]
  - Blood pressure increased [Unknown]
